FAERS Safety Report 9770616 (Version 2)
Quarter: 2013Q4

REPORT INFORMATION
  Report Type: Spontaneous
  Country: DK (occurrence: DK)
  Receive Date: 20131218
  Receipt Date: 20131218
  Transmission Date: 20140711
  Serious: Yes (Disabling)
  Sender: FDA-Public Use
  Company Number: DK-GE HEALTHCARE MEDICAL DIAGNOSTICS-OSCN-NO-0901S-0033

PATIENT
  Age: 69 Year
  Sex: Male

DRUGS (10)
  1. OMNISCAN [Suspect]
     Indication: NEPHRECTOMY
     Route: 042
     Dates: start: 20000905, end: 20000905
  2. OMNISCAN [Suspect]
     Indication: PYREXIA
     Route: 042
     Dates: start: 20021203, end: 20021203
  3. GADOLINIUM (UNSPECIFIED) [Concomitant]
     Dates: start: 20010106, end: 20010106
  4. NEORECORMON [Concomitant]
  5. VITAMINS NOS [Concomitant]
  6. REMERON [Concomitant]
  7. SERENASE [Concomitant]
  8. QUININE [Concomitant]
  9. METOCLOPRAMID [Concomitant]
  10. LACTULOSE [Concomitant]

REACTIONS (1)
  - Nephrogenic systemic fibrosis [Not Recovered/Not Resolved]
